APPROVED DRUG PRODUCT: PROSTIN F2 ALPHA
Active Ingredient: DINOPROST TROMETHAMINE
Strength: EQ 5MG BASE/ML
Dosage Form/Route: INJECTABLE;INJECTION
Application: N017434 | Product #001
Applicant: PHARMACIA AND UPJOHN CO
Approved: Approved Prior to Jan 1, 1982 | RLD: No | RS: No | Type: DISCN